FAERS Safety Report 19099244 (Version 3)
Quarter: 2021Q2

REPORT INFORMATION
  Report Type: Report from Study
  Country: US (occurrence: US)
  Receive Date: 20210406
  Receipt Date: 20210527
  Transmission Date: 20210717
  Serious: Yes (Hospitalization, Other)
  Sender: FDA-Public Use
  Company Number: US-INSMED, INC.-US-INS-20-02410

PATIENT
  Age: 73 Year
  Sex: Female

DRUGS (3)
  1. ARIKAYCE [Suspect]
     Active Substance: AMIKACIN
     Dosage: 590 MILLIGRAM, TIW
     Route: 055
     Dates: end: 2021
  2. ARIKAYCE [Suspect]
     Active Substance: AMIKACIN
     Dosage: 590 MILLIGRAM, QD
     Route: 055
     Dates: start: 2021, end: 2021
  3. ARIKAYCE [Suspect]
     Active Substance: AMIKACIN
     Indication: MYCOBACTERIAL INFECTION
     Dosage: 590 MILLIGRAM, QD
     Route: 055
     Dates: start: 20201223

REACTIONS (9)
  - Product packaging difficult to open [Unknown]
  - Adverse drug reaction [Unknown]
  - Therapy interrupted [Unknown]
  - Throat irritation [Unknown]
  - Emergency care [Unknown]
  - Intestinal obstruction [Unknown]
  - Cough [Unknown]
  - Dizziness [Unknown]
  - Off label use [Unknown]

NARRATIVE: CASE EVENT DATE: 20201223
